FAERS Safety Report 11122632 (Version 1)
Quarter: 2015Q2

REPORT INFORMATION
  Report Type: Spontaneous
  Country: US (occurrence: None)
  Receive Date: 20150518
  Receipt Date: 20150518
  Transmission Date: 20150821
  Serious: Yes (Life-Threatening, Hospitalization, Disabling)
  Sender: FDA-Public Use
  Company Number: None

PATIENT
  Age: 52 Year
  Sex: Female
  Weight: 79.38 kg

DRUGS (1)
  1. HUMIRA [Suspect]
     Active Substance: ADALIMUMAB
     Indication: PSORIATIC ARTHROPATHY
     Dosage: WEEKLY, INTO THE MUSCLE
     Dates: start: 20150502

REACTIONS (6)
  - Genitourinary tract neoplasm [None]
  - Neoplasm malignant [None]
  - Squamous cell carcinoma [None]
  - Adenocarcinoma [None]
  - Immunosuppression [None]
  - Lung adenocarcinoma [None]

NARRATIVE: CASE EVENT DATE: 20140428
